FAERS Safety Report 10177180 (Version 1)
Quarter: 2014Q2

REPORT INFORMATION
  Report Type: Spontaneous
  Country: US (occurrence: US)
  Receive Date: 20140516
  Receipt Date: 20140516
  Transmission Date: 20141212
  Serious: No
  Sender: FDA-Public Use
  Company Number: US-PFIZER INC-2014130371

PATIENT
  Age: 38 Year
  Sex: Female
  Weight: 77.1 kg

DRUGS (10)
  1. AZITHROMYCIN [Suspect]
     Indication: BRONCHITIS
     Dosage: UNK
     Dates: start: 201312
  2. COPAXONE [Concomitant]
     Dosage: 20 MG/ML, UNK
     Dates: start: 20130808
  3. IBUPROFEN [Concomitant]
     Dosage: 600 MG, AS NEEDED
     Route: 048
  4. LIAROZOLE HYDROCHLORIDE [Concomitant]
     Indication: MUSCLE SPASTICITY
     Dosage: 10 MG, 2X/DAY
     Route: 048
  5. NEURONTIN [Concomitant]
     Dosage: 300 MG, 3X/DAY
     Dates: start: 20120719
  6. PROVIGIL [Concomitant]
     Dosage: 200 MG, 2X/DAY
     Route: 048
  7. TOPAMAX [Concomitant]
     Indication: MIGRAINE PROPHYLAXIS
     Dosage: UNK
     Dates: start: 20131015
  8. TRAMADOL [Concomitant]
     Dosage: 50 MG, 2X/DAY
     Route: 048
  9. VALIUM [Concomitant]
     Dosage: 5 MG, AS NEEDED
     Route: 048
     Dates: start: 20131118
  10. ZANTAC [Concomitant]
     Dosage: 1 DF, 2X/DAY
     Route: 048

REACTIONS (5)
  - Drug ineffective [Not Recovered/Not Resolved]
  - Rhinorrhoea [Not Recovered/Not Resolved]
  - Cough [Recovered/Resolved]
  - Wheezing [Recovered/Resolved]
  - Dyspnoea [Not Recovered/Not Resolved]
